FAERS Safety Report 5658005-9 (Version None)
Quarter: 2008Q1

REPORT INFORMATION
  Report Type: 
  Country: None (occurrence: None)
  Receive Date: 20080306
  Receipt Date: 20080227
  Transmission Date: 20080703
  Serious: Yes (Death)
  Sender: FDA-Public Use
  Company Number: S08-USA-00766-01

PATIENT
  Age: 77 Year
  Sex: Male

DRUGS (9)
  1. CELEXA [Suspect]
     Indication: DEPRESSION
     Dosage: 20 MG QD PO
     Route: 048
     Dates: start: 20070517, end: 20070522
  2. RIMONABANT (STUDY DRUG) [Suspect]
     Indication: WEIGHT CONTROL
     Dosage: 20 MG QD
     Dates: start: 20060601, end: 20070501
  3. INSULIN [Concomitant]
  4. METFORMIN HCL [Concomitant]
  5. COUMADIN [Concomitant]
  6. LISINOPRIL [Concomitant]
  7. ISOSORBIDE DINITRATE [Concomitant]
  8. PRILOSEC [Concomitant]
  9. TERAZOSIN HCL [Concomitant]

REACTIONS (4)
  - COMPLETED SUICIDE [None]
  - CONDITION AGGRAVATED [None]
  - DEPRESSION [None]
  - HEADACHE [None]
